FAERS Safety Report 14701228 (Version 1)
Quarter: 2018Q1

REPORT INFORMATION
  Report Type: Spontaneous
  Country: US (occurrence: US)
  Receive Date: 20180330
  Receipt Date: 20180330
  Transmission Date: 20180509
  Serious: No
  Sender: FDA-Public Use
  Company Number: US-STALLERGENES SAS-2044826

PATIENT
  Age: 34 Year
  Sex: Female

DRUGS (3)
  1. PROBIOTIC (BIFIDOBACTERIUM LACTIS) [Concomitant]
     Active Substance: BIFIDOBACTERIUM ANIMALIS LACTIS
  2. MULTIVITAMIN GUMMY [Concomitant]
  3. ORALAIR [Suspect]
     Active Substance: ANTHOXANTHUM ODORATUM POLLEN\DACTYLIS GLOMERATA POLLEN\LOLIUM PERENNE POLLEN\PHLEUM PRATENSE POLLEN\POA PRATENSIS POLLEN
     Indication: RHINITIS ALLERGIC
     Route: 060
     Dates: start: 20171003, end: 20171025

REACTIONS (6)
  - Throat irritation [Recovered/Resolved]
  - Sensation of foreign body [Recovered/Resolved]
  - Nasal congestion [Recovered/Resolved]
  - Pruritus [Recovered/Resolved]
  - Cough [Recovered/Resolved]
  - Dyspepsia [Recovered/Resolved]
